FAERS Safety Report 18715861 (Version 3)
Quarter: 2021Q1

REPORT INFORMATION
  Report Type: Spontaneous
  Country: US (occurrence: US)
  Receive Date: 20210108
  Receipt Date: 20210301
  Transmission Date: 20210419
  Serious: No
  Sender: FDA-Public Use
  Company Number: US-PFIZER INC-2020520967

PATIENT
  Age: 11 Year
  Sex: Female
  Weight: 35.38 kg

DRUGS (2)
  1. GENOTROPIN [Suspect]
     Active Substance: SOMATROPIN
     Indication: GROWTH DISORDER
  2. GENOTROPIN [Suspect]
     Active Substance: SOMATROPIN
     Indication: GROWTH HORMONE DEFICIENCY
     Dosage: 1.4 MG, 1X/DAY (INJECTION AT NIGHT)
     Dates: start: 2018

REACTIONS (4)
  - Device information output issue [Unknown]
  - Drug dose omission by device [Unknown]
  - Scoliosis [Unknown]
  - Device issue [Unknown]

NARRATIVE: CASE EVENT DATE: 2019
